FAERS Safety Report 18168430 (Version 2)
Quarter: 2020Q4

REPORT INFORMATION
  Report Type: Report from Study
  Country: BR (occurrence: BR)
  Receive Date: 20200819
  Receipt Date: 20201022
  Transmission Date: 20210113
  Serious: Yes (Other)
  Sender: FDA-Public Use
  Company Number: BR-BIOGEN-2020BI00911502

PATIENT
  Sex: Female

DRUGS (7)
  1. AVONEX PEN [Suspect]
     Active Substance: INTERFERON BETA-1A
     Route: 030
     Dates: start: 201107, end: 2012
  2. BETA INTERFERONE 1B [Suspect]
     Active Substance: INTERFERON BETA-1B
     Indication: PRODUCT USED FOR UNKNOWN INDICATION
     Route: 065
     Dates: start: 201105
  3. BETA INTERFERONE 1B [Suspect]
     Active Substance: INTERFERON BETA-1B
     Route: 065
     Dates: start: 201208
  4. AVONEX PEN [Suspect]
     Active Substance: INTERFERON BETA-1A
  5. BETA INTERFERONE 1B [Suspect]
     Active Substance: INTERFERON BETA-1B
     Route: 065
     Dates: start: 201406, end: 2015
  6. AVONEX PEN [Suspect]
     Active Substance: INTERFERON BETA-1A
     Route: 030
     Dates: start: 20030308, end: 201105
  7. AVONEX PEN [Suspect]
     Active Substance: INTERFERON BETA-1A
     Indication: MULTIPLE SCLEROSIS
     Route: 030
     Dates: start: 20030308, end: 201101

REACTIONS (5)
  - Blindness unilateral [Recovered/Resolved]
  - Blindness unilateral [Recovered/Resolved]
  - Multiple sclerosis relapse [Recovered/Resolved]
  - Memory impairment [Not Recovered/Not Resolved]
  - Paraesthesia [Recovered/Resolved]

NARRATIVE: CASE EVENT DATE: 2011
